FAERS Safety Report 4316883-X (Version None)
Quarter: 2004Q1

REPORT INFORMATION
  Report Type: 
  Country: None (occurrence: None)
  Receive Date: 20040308
  Receipt Date: 20031111
  Transmission Date: 20041129
  Serious: Yes (Hospitalization, Other)
  Sender: FDA-Public Use
  Company Number: PHEH2003US10055

PATIENT
  Age: 74 Year
  Sex: Female

DRUGS (6)
  1. GLEEVEC [Suspect]
     Indication: GASTROINTESTINAL STROMAL TUMOUR
     Dosage: 400 MG, QD, ORAL
     Route: 048
     Dates: start: 20030806
  2. PHENERGAN [Concomitant]
  3. ZOFRAN [Concomitant]
  4. ZOLOFT [Concomitant]
  5. LORCET-HD [Concomitant]
  6. DARVON [Concomitant]

REACTIONS (8)
  - ABDOMINAL ABSCESS [None]
  - ABSCESS DRAINAGE [None]
  - GASTROINTESTINAL STROMAL TUMOUR [None]
  - HYPOAESTHESIA [None]
  - MUSCULAR WEAKNESS [None]
  - NEUROPATHY [None]
  - PAIN IN EXTREMITY [None]
  - PARAESTHESIA [None]
